FAERS Safety Report 14943870 (Version 1)
Quarter: 2018Q2

REPORT INFORMATION
  Report Type: Spontaneous
  Country: US (occurrence: US)
  Receive Date: 20180528
  Receipt Date: 20180528
  Transmission Date: 20180711
  Serious: No
  Sender: FDA-Public Use
  Company Number: US-TEVA-2018-US-896807

PATIENT
  Age: 64 Year
  Sex: Female

DRUGS (2)
  1. CHLORZOXAZONE. [Suspect]
     Active Substance: CHLORZOXAZONE
     Indication: MUSCLE TIGHTNESS
  2. CHLORZOXAZONE. [Suspect]
     Active Substance: CHLORZOXAZONE
     Indication: HEADACHE
     Dates: start: 20180509, end: 20180516

REACTIONS (2)
  - Headache [Recovered/Resolved]
  - Somnolence [Recovered/Resolved]

NARRATIVE: CASE EVENT DATE: 20180509
